FAERS Safety Report 11636076 (Version 2)
Quarter: 2015Q4

REPORT INFORMATION
  Report Type: Report from Study
  Country: CA (occurrence: CA)
  Receive Date: 20151016
  Receipt Date: 20151103
  Transmission Date: 20160304
  Serious: Yes (Other)
  Sender: FDA-Public Use
  Company Number: CA-ROCHE-1560903

PATIENT
  Age: 47 Year
  Sex: Female

DRUGS (13)
  1. PROMETRIUM [Concomitant]
     Active Substance: PROGESTERONE
  2. DIPHENHYDRAMINE. [Concomitant]
     Active Substance: DIPHENHYDRAMINE
     Indication: PREMEDICATION
     Route: 048
     Dates: start: 20150403, end: 20150416
  3. CORTISONE [Concomitant]
     Active Substance: CORTISONE\HYDROCORTISONE
  4. ESTRADOT [Concomitant]
     Active Substance: ESTRADIOL
  5. IMURAN [Concomitant]
     Active Substance: AZATHIOPRINE
  6. APO-HYDROXYZINE [Concomitant]
     Active Substance: HYDROXYZINE HYDROCHLORIDE
     Dosage: AS REQUIRED
     Route: 065
  7. ACETAMINOPHEN. [Concomitant]
     Active Substance: ACETAMINOPHEN
     Indication: PREMEDICATION
     Route: 048
     Dates: start: 20150403, end: 20150416
  8. PREDNISONE. [Concomitant]
     Active Substance: PREDNISONE
  9. RITUXAN [Suspect]
     Active Substance: RITUXIMAB
     Indication: PEMPHIGUS
     Route: 042
     Dates: start: 20150403, end: 20150416
  10. ALENDRONATE [Concomitant]
     Active Substance: ALENDRONATE SODIUM
  11. METHYLPREDNISOLONE. [Concomitant]
     Active Substance: METHYLPREDNISOLONE
     Indication: PREMEDICATION
     Route: 042
     Dates: start: 20150403, end: 20150416
  12. TRIATEC (CODEINE PHOSPHATE/PARACETAMOL) [Concomitant]
     Dosage: AS REQUIRED
     Route: 065
  13. PANTOPRAZOLE [Concomitant]
     Active Substance: PANTOPRAZOLE SODIUM

REACTIONS (3)
  - Off label use [Unknown]
  - Colon cancer [Not Recovered/Not Resolved]
  - Infusion related reaction [Recovered/Resolved]

NARRATIVE: CASE EVENT DATE: 20150403
